FAERS Safety Report 14881135 (Version 2)
Quarter: 2018Q2

REPORT INFORMATION
  Report Type: Spontaneous
  Country: US (occurrence: US)
  Receive Date: 20180511
  Receipt Date: 20180522
  Transmission Date: 20180711
  Serious: Yes (Other)
  Sender: FDA-Public Use
  Company Number: US-TEVA-2018-US-890273

PATIENT
  Age: 3 Year
  Sex: Male
  Weight: 17 kg

DRUGS (2)
  1. QVAR [Suspect]
     Active Substance: BECLOMETHASONE DIPROPIONATE
     Indication: ASTHMA
     Dosage: TWICE DAILY WITH A SPACER
  2. ALBUTEROL. [Concomitant]
     Active Substance: ALBUTEROL

REACTIONS (3)
  - Wrong technique in product usage process [Unknown]
  - Asthma [Unknown]
  - Drug administered to patient of inappropriate age [Unknown]
